FAERS Safety Report 18645904 (Version 1)
Quarter: 2020Q4

REPORT INFORMATION
  Report Type: Spontaneous
  Country: US (occurrence: US)
  Receive Date: 20201221
  Receipt Date: 20201221
  Transmission Date: 20210114
  Serious: Yes (Other)
  Sender: FDA-Public Use
  Company Number: US-GILEAD-2020-0509659

PATIENT
  Age: 4 Year
  Sex: Female
  Weight: 19.5 kg

DRUGS (7)
  1. FAMOTIDINE. [Concomitant]
     Active Substance: FAMOTIDINE
     Dosage: UNK
     Dates: start: 20201128
  2. REMDESIVIR. [Suspect]
     Active Substance: REMDESIVIR
     Dosage: 50 MG, QD
     Route: 042
     Dates: start: 20201204, end: 20201207
  3. MICAFUNGIN. [Concomitant]
     Active Substance: MICAFUNGIN SODIUM
     Dosage: UNK
     Dates: start: 20201129, end: 20201209
  4. REMDESIVIR. [Suspect]
     Active Substance: REMDESIVIR
     Indication: COVID-19
     Dosage: 100 MG, ONCE
     Route: 042
     Dates: start: 20201203, end: 20201203
  5. ACETAMINOPHEN. [Concomitant]
     Active Substance: ACETAMINOPHEN
     Dosage: UNK
     Dates: start: 20201127
  6. VITAMIN K [PHYTOMENADIONE] [Concomitant]
     Dosage: 2.5 MG, ONCE
     Route: 048
  7. CEFEPIME [Concomitant]
     Active Substance: CEFEPIME HYDROCHLORIDE
     Dosage: UNK
     Dates: start: 20201127, end: 20201213

REACTIONS (1)
  - Prothrombin time prolonged [Unknown]

NARRATIVE: CASE EVENT DATE: 20201204
